FAERS Safety Report 8395651-6 (Version None)
Quarter: 2012Q2

REPORT INFORMATION
  Report Type: 
  Country: None (occurrence: None)
  Receive Date: 20120530
  Receipt Date: 20120117
  Transmission Date: 20120825
  Serious: No
  Sender: FDA-Public Use
  Company Number: US-GLAXOSMITHKLINE-A0961800A

PATIENT
  Age: 44 Year
  Sex: Male

DRUGS (2)
  1. SLEEP AID [Concomitant]
  2. VENTOLIN [Suspect]
     Indication: ASTHMA
     Dosage: 1PUFF SIX TIMES PER DAY
     Route: 055
     Dates: start: 20120104

REACTIONS (3)
  - DYSPNOEA [None]
  - DRUG INEFFECTIVE [None]
  - PRODUCT QUALITY ISSUE [None]
